FAERS Safety Report 8081273-3 (Version None)
Quarter: 2012Q1

REPORT INFORMATION
  Report Type: 
  Country: None (occurrence: None)
  Receive Date: 20120130
  Receipt Date: 20120123
  Transmission Date: 20120608
  Serious: Yes (Hospitalization)
  Sender: FDA-Public Use
  Company Number: CA-ABBOTT-12P-028-0896652-00

PATIENT
  Sex: Female

DRUGS (6)
  1. WARFARIN SODIUM [Concomitant]
     Indication: PRODUCT USED FOR UNKNOWN INDICATION
     Dates: start: 20080101
  2. ATENOLOL [Concomitant]
     Indication: PRODUCT USED FOR UNKNOWN INDICATION
     Dates: start: 20000101
  3. AMLODIPINE [Concomitant]
     Indication: PRODUCT USED FOR UNKNOWN INDICATION
     Dates: start: 20110101
  4. PERINDOPRIL ERBUMINE [Suspect]
     Indication: HYPERTENSION
     Dosage: REGIMEN #1
     Route: 048
     Dates: start: 20080101
  5. PERINDOPRIL ERBUMINE [Suspect]
     Dosage: REGIMEN #2
     Route: 048
  6. HYDROCHLOROTHIAZIDE [Concomitant]
     Indication: PRODUCT USED FOR UNKNOWN INDICATION
     Dates: start: 20000101

REACTIONS (5)
  - NAUSEA [None]
  - DERMATITIS [None]
  - ATRIAL FIBRILLATION [None]
  - EARLY SATIETY [None]
  - FLATULENCE [None]
